FAERS Safety Report 7427602-2 (Version None)
Quarter: 2011Q2

REPORT INFORMATION
  Report Type: 
  Country: None (occurrence: None)
  Receive Date: 20110420
  Receipt Date: 20110407
  Transmission Date: 20111010
  Serious: Yes (Hospitalization)
  Sender: FDA-Public Use
  Company Number: US-MYLANLABS-2011S1007598

PATIENT
  Age: 41 Year
  Sex: Female

DRUGS (5)
  1. ATORVASTATIN [Concomitant]
     Route: 065
  2. OXCARBAZEPINE [Concomitant]
     Route: 065
  3. LEVOTHYROXINE SODIUM [Concomitant]
     Route: 065
  4. METFORMIN HCL [Concomitant]
     Route: 065
  5. CLOZAPINE [Suspect]
     Indication: PSYCHOTIC DISORDER
     Dosage: TITRATED TO 650 MG/DAY; INITIAL DOSAGE UNKNOWN
     Route: 065

REACTIONS (3)
  - ALVEOLITIS [None]
  - RED BLOOD CELL SEDIMENTATION RATE INCREASED [None]
  - LIVER FUNCTION TEST ABNORMAL [None]
